FAERS Safety Report 24314723 (Version 2)
Quarter: 2024Q4

REPORT INFORMATION
  Report Type: Spontaneous
  Country: JP (occurrence: JP)
  Receive Date: 20240913
  Receipt Date: 20241104
  Transmission Date: 20250115
  Serious: No
  Sender: Vantive US Healthcare
  Company Number: JP-VANTIVE-2024VAN019503

PATIENT
  Age: 5 Decade
  Sex: Male

DRUGS (2)
  1. REGUNEAL HCA [Suspect]
     Active Substance: CALCIUM CHLORIDE\DEXTROSE MONOHYDRATE\HYDROCHLORIC ACID\MAGNESIUM CHLORIDE\SODIUM BICARBONATE\SODIUM
     Indication: Peritoneal dialysis
     Dosage: 2000ML 4 TIMES
     Route: 033
     Dates: start: 20210305
  2. EXTRANEAL [Suspect]
     Active Substance: CALCIUM CHLORIDE\ICODEXTRIN\MAGNESIUM CHLORIDE\SODIUM CHLORIDE\SODIUM LACTATE
     Indication: Peritoneal dialysis
     Dosage: 1500ML
     Route: 033
     Dates: start: 20210305

REACTIONS (4)
  - Peritoneal dialysis complication [Unknown]
  - Catheter site infection [Recovered/Resolved]
  - Catheter site discomfort [Unknown]
  - Inflammation [Unknown]

NARRATIVE: CASE EVENT DATE: 20240903
